FAERS Safety Report 9833345 (Version 2)
Quarter: 2014Q1

REPORT INFORMATION
  Report Type: Spontaneous
  Country: US (occurrence: US)
  Receive Date: 20140121
  Receipt Date: 20140212
  Transmission Date: 20141002
  Serious: Yes (Hospitalization, Other)
  Sender: FDA-Public Use
  Company Number: US-009507513-1401USA005742

PATIENT
  Age: 68 Year
  Sex: Male

DRUGS (3)
  1. TEMODAR [Suspect]
     Indication: GLIOBLASTOMA
     Dosage: 150 MICROGRAM, QPM
     Route: 048
     Dates: start: 20140101, end: 20140104
  2. MORPHINE [Concomitant]
     Dosage: UNK
  3. LORAZEPAM [Concomitant]
     Dosage: UNK

REACTIONS (3)
  - Fall [Not Recovered/Not Resolved]
  - Glioblastoma [Not Recovered/Not Resolved]
  - Rash [Not Recovered/Not Resolved]
